FAERS Safety Report 5321190-2 (Version None)
Quarter: 2007Q1

REPORT INFORMATION
  Report Type: 
  Country: None (occurrence: None)
  Receive Date: 20070215
  Receipt Date: 20060803
  Transmission Date: 20070707
  Serious: Yes (Hospitalization)
  Sender: FDA-Public Use
  Company Number: 2006BH012377

PATIENT
  Age: 71 Year
  Sex: Female

DRUGS (18)
  1. EXTRANEAL [Suspect]
     Indication: HYPOVOLAEMIA
     Dosage: 6 L; AT BEDTIME; IP
     Dates: start: 20060701, end: 20060711
  2. EXTRANEAL [Suspect]
     Indication: RENAL FAILURE CHRONIC
     Dosage: 6 L; AT BEDTIME; IP
     Dates: start: 20060701, end: 20060711
  3. EXTRANEAL [Suspect]
     Indication: WEIGHT DECREASED
     Dosage: 6 L; AT BEDTIME; IP
     Dates: start: 20060701, end: 20060711
  4. DIANEAL [Suspect]
     Indication: HYPOVOLAEMIA
     Dosage: 6 L; EVERY 4 HR; IP
     Dates: start: 20030630
  5. DIANEAL [Suspect]
     Indication: RENAL FAILURE CHRONIC
     Dosage: 6 L; EVERY 4 HR; IP
     Dates: start: 20030630
  6. DIANEAL [Suspect]
     Indication: WEIGHT DECREASED
     Dosage: 6 L; EVERY 4 HR; IP
     Dates: start: 20030630
  7. EPOGEN [Concomitant]
  8. TYLENOL [Concomitant]
  9. NEPHROCAPS [Concomitant]
  10. PEPCID [Concomitant]
  11. POTASSIUM CHLORIDE [Concomitant]
  12. BUMEX [Concomitant]
  13. FOSRENOL [Concomitant]
  14. WELCHOL [Concomitant]
  15. GENTAMICIN [Concomitant]
  16. SODIUM BICARBONATE [Concomitant]
  17. BACTROBAN [Concomitant]
  18. LIDEX [Concomitant]

REACTIONS (4)
  - PERITONITIS BACTERIAL [None]
  - PSEUDOMONAS INFECTION [None]
  - RASH ERYTHEMATOUS [None]
  - SKIN EXFOLIATION [None]
